FAERS Safety Report 21692561 (Version 1)
Quarter: 2022Q4

REPORT INFORMATION
  Report Type: Spontaneous
  Country: FR (occurrence: FR)
  Receive Date: 20221207
  Receipt Date: 20221207
  Transmission Date: 20230113
  Serious: Yes (Other)
  Sender: FDA-Public Use
  Company Number: FR-AFSSAPS-PO20221913

PATIENT
  Age: 65 Year
  Sex: Male

DRUGS (1)
  1. MORPHINE [Suspect]
     Active Substance: MORPHINE
     Indication: Pain
     Dosage: UNSPECIFIED, UNK
     Route: 040
     Dates: start: 20221017

REACTIONS (4)
  - Respiratory failure [Recovered/Resolved]
  - Product preparation error [Recovered/Resolved]
  - Hyperhidrosis [Recovered/Resolved]
  - Somnolence [Recovered/Resolved]

NARRATIVE: CASE EVENT DATE: 20221017
